FAERS Safety Report 13685603 (Version 7)
Quarter: 2020Q4

REPORT INFORMATION
  Report Type: Spontaneous
  Country: OM (occurrence: OM)
  Receive Date: 20170623
  Receipt Date: 20201224
  Transmission Date: 20210113
  Serious: Yes (Life-Threatening, Hospitalization, Other)
  Sender: FDA-Public Use
  Company Number: AE-APOPHARMA-2017AP013294

PATIENT
  Age: 14 Year
  Sex: Male
  Weight: 42 kg

DRUGS (3)
  1. FERRIPROX [Suspect]
     Active Substance: DEFERIPRONE
     Indication: THALASSAEMIA
     Dosage: 25 MG/KG, TID
     Route: 048
     Dates: start: 20170517, end: 20170524
  2. FERRIPROX [Suspect]
     Active Substance: DEFERIPRONE
     Dosage: 100 MG/KG, UNKNOWN
     Route: 065
  3. DESFERAL [Concomitant]
     Active Substance: DEFEROXAMINE MESYLATE
     Indication: THALASSAEMIA
     Dosage: 25 MG/KG, QD
     Route: 058
     Dates: start: 20160110, end: 20170524

REACTIONS (15)
  - Circulatory collapse [Recovered/Resolved]
  - Febrile neutropenia [Recovered/Resolved]
  - Tracheal haemorrhage [Recovered/Resolved]
  - Agranulocytosis [Recovered/Resolved]
  - Haemoptysis [Recovered/Resolved]
  - Shock haemorrhagic [Recovered/Resolved]
  - Lymphopenia [Unknown]
  - Subcutaneous emphysema [Recovered/Resolved]
  - Pulmonary artery aneurysm [Recovered/Resolved]
  - Thrombosis [Recovered/Resolved]
  - Infectious pleural effusion [Recovered/Resolved]
  - Pneumonia [Recovered/Resolved]
  - Aneurysm ruptured [Recovered/Resolved]
  - Cardio-respiratory arrest [Recovered/Resolved]
  - Pulmonary haemorrhage [Recovered/Resolved]

NARRATIVE: CASE EVENT DATE: 20170524
